FAERS Safety Report 24304779 (Version 6)
Quarter: 2025Q1

REPORT INFORMATION
  Report Type: Report from Study
  Country: US (occurrence: US)
  Receive Date: 20240910
  Receipt Date: 20250317
  Transmission Date: 20250408
  Serious: Yes (Other)
  Sender: ABBVIE
  Company Number: US-ABBVIE-5908235

PATIENT
  Age: 66 Year
  Sex: Male
  Weight: 70.306 kg

DRUGS (2)
  1. RINVOQ [Suspect]
     Active Substance: UPADACITINIB
     Indication: Dermatitis atopic
     Dosage: FORM STRENGTH: 15 MILLIGRAM
     Route: 048
     Dates: start: 20240915
  2. RINVOQ [Suspect]
     Active Substance: UPADACITINIB
     Indication: Dermatitis atopic
     Dosage: FORM STRENGTH: 30 MILLIGRAM
     Route: 048
     Dates: start: 20231030, end: 20240901

REACTIONS (6)
  - Skin cancer [Not Recovered/Not Resolved]
  - Squamous cell carcinoma of skin [Not Recovered/Not Resolved]
  - Back pain [Unknown]
  - Musculoskeletal stiffness [Unknown]
  - Skin erosion [Unknown]
  - Dermatitis atopic [Recovering/Resolving]

NARRATIVE: CASE EVENT DATE: 20240601
